FAERS Safety Report 22250852 (Version 11)
Quarter: 2024Q3

REPORT INFORMATION
  Report Type: Report from Study
  Country: US (occurrence: US)
  Receive Date: 20230425
  Receipt Date: 20240723
  Transmission Date: 20241016
  Serious: Yes (Hospitalization, Other)
  Sender: DAIICHI
  Company Number: US-DSJP-DSU-2023-116174AA

PATIENT
  Sex: Female
  Weight: 84 kg

DRUGS (12)
  1. PEXIDARTINIB [Suspect]
     Active Substance: PEXIDARTINIB
     Indication: Giant cell tumour of tendon sheath
     Dosage: 250 MG, BID
     Route: 048
     Dates: start: 202303, end: 20230407
  2. PEXIDARTINIB [Suspect]
     Active Substance: PEXIDARTINIB
     Indication: Connective tissue neoplasm
     Dosage: 125 MG, BID (1 CAPSULE BY MOUTH TWICE DAILY)
     Route: 048
     Dates: start: 20230407
  3. PEXIDARTINIB [Suspect]
     Active Substance: PEXIDARTINIB
     Indication: Soft tissue neoplasm
     Dosage: 125 MG, TID (125 MG IN AM+ 250 MG IN PM)
     Route: 048
     Dates: start: 20230511
  4. PEXIDARTINIB [Suspect]
     Active Substance: PEXIDARTINIB
     Dosage: 125 MG, BID
     Route: 048
     Dates: start: 20230525, end: 202311
  5. PEXIDARTINIB [Suspect]
     Active Substance: PEXIDARTINIB
     Dosage: 125 MG, BID
     Route: 048
     Dates: start: 202312
  6. CHOLECALCIFEROL [Concomitant]
     Active Substance: CHOLECALCIFEROL
     Indication: Product used for unknown indication
     Dosage: 50000 IU, ONCE EVERY 1 WK
     Route: 048
  7. HYDROXYCHLOROQUINE SULFATE [Concomitant]
     Active Substance: HYDROXYCHLOROQUINE SULFATE
     Indication: Product used for unknown indication
     Dosage: 200 MG, QD
     Route: 048
  8. NORETHINDRONE [Concomitant]
     Active Substance: NORETHINDRONE
     Indication: Product used for unknown indication
     Dosage: 0.35 MG, QD
     Route: 048
  9. ZOLPIDEM [Concomitant]
     Active Substance: ZOLPIDEM TARTRATE
     Indication: Product used for unknown indication
     Dosage: 10 MG, AS NEEDED QHS
     Route: 048
  10. VITAMINS [Concomitant]
     Active Substance: VITAMINS
     Indication: Product used for unknown indication
     Dosage: UNK UNK, QD
     Route: 048
  11. HERBALS\TURMERIC [Concomitant]
     Active Substance: HERBALS\TURMERIC
     Indication: Product used for unknown indication
     Dosage: UNK UNK, QD
     Route: 048
  12. ASCORBIC ACID\IRON [Concomitant]
     Active Substance: ASCORBIC ACID\IRON
     Indication: Product used for unknown indication
     Dosage: UNK UNK, OTC QD
     Route: 065

REACTIONS (22)
  - Gamma-glutamyltransferase increased [Recovering/Resolving]
  - Medical procedure [Recovered/Resolved]
  - Sensitive skin [Recovered/Resolved]
  - Abdominal discomfort [Unknown]
  - Diarrhoea [Unknown]
  - Lethargy [Unknown]
  - Appetite disorder [Unknown]
  - Sensitive skin [Recovered/Resolved]
  - Blood magnesium decreased [Recovered/Resolved]
  - Menstrual disorder [Recovered/Resolved]
  - Aspartate aminotransferase increased [Recovering/Resolving]
  - Alanine aminotransferase increased [Recovering/Resolving]
  - Blood alkaline phosphatase increased [Recovering/Resolving]
  - Hepatic enzyme abnormal [Unknown]
  - Transaminases increased [Recovering/Resolving]
  - Hepatic enzyme increased [Unknown]
  - Bilirubin conjugated decreased [Unknown]
  - Blood bilirubin decreased [Unknown]
  - Surgery [Recovered/Resolved]
  - Product dose omission in error [Unknown]
  - Product dose omission in error [Recovered/Resolved]
  - Product dose omission issue [Unknown]

NARRATIVE: CASE EVENT DATE: 20230101
